FAERS Safety Report 7592436-5 (Version None)
Quarter: 2011Q2

REPORT INFORMATION
  Report Type: 
  Country: None (occurrence: None)
  Receive Date: 20110628
  Receipt Date: 20110623
  Transmission Date: 20111010
  Serious: Yes (Other)
  Sender: FDA-Public Use
  Company Number: 2011SP029431

PATIENT
  Age: 40 Year
  Sex: Female

DRUGS (3)
  1. SAPHRIS [Suspect]
     Indication: BIPOLAR I DISORDER
     Dosage: 5 MG; QD, 10 MG; QD
     Dates: end: 20110601
  2. ADDERALL 10 [Concomitant]
  3. PAXIL [Concomitant]

REACTIONS (3)
  - OEDEMA PERIPHERAL [None]
  - CONSTIPATION [None]
  - GASTRIC DILATATION [None]
